FAERS Safety Report 11944472 (Version 4)
Quarter: 2017Q1

REPORT INFORMATION
  Report Type: Report from Study
  Country: DE (occurrence: DE)
  Receive Date: 20160125
  Receipt Date: 20170116
  Transmission Date: 20170428
  Serious: Yes (Hospitalization)
  Sender: FDA-Public Use
  Company Number: DE-ROCHE-1602101

PATIENT
  Age: 68 Year
  Sex: Male
  Weight: 68 kg

DRUGS (23)
  1. 5-FU [Concomitant]
     Active Substance: FLUOROURACIL
     Dosage: D1-D2
     Route: 041
     Dates: start: 20150731, end: 20150802
  2. OXALIPLATIN. [Concomitant]
     Active Substance: OXALIPLATIN
     Indication: COLORECTAL CANCER
     Route: 042
     Dates: start: 20150518, end: 20150714
  3. HCTZ [Concomitant]
     Active Substance: HYDROCHLOROTHIAZIDE
     Indication: HYPERTENSION
     Route: 048
     Dates: end: 201612
  4. FOLINIC ACID [Concomitant]
     Active Substance: LEUCOVORIN
     Indication: COLORECTAL CANCER
     Route: 042
     Dates: start: 20150518, end: 20150715
  5. BEVACIZUMAB [Suspect]
     Active Substance: BEVACIZUMAB
     Dosage: SINGLE DOSE
     Route: 042
     Dates: start: 20150714, end: 20150714
  6. 5-FU [Concomitant]
     Active Substance: FLUOROURACIL
     Dosage: D1-D2
     Route: 041
     Dates: start: 20150518, end: 20150716
  7. FOLINIC ACID [Concomitant]
     Active Substance: LEUCOVORIN
     Route: 042
     Dates: start: 20150731, end: 20150801
  8. OXALIPLATIN. [Concomitant]
     Active Substance: OXALIPLATIN
     Route: 042
     Dates: start: 20150731, end: 20150731
  9. BEVACIZUMAB [Suspect]
     Active Substance: BEVACIZUMAB
     Indication: COLORECTAL CANCER
     Dosage: SINGLE DOSE
     Route: 042
     Dates: start: 20150602, end: 20150602
  10. BEVACIZUMAB [Suspect]
     Active Substance: BEVACIZUMAB
     Dosage: SINGLE DOSE
     Route: 042
     Dates: start: 20150730, end: 20150730
  11. 5-FU [Concomitant]
     Active Substance: FLUOROURACIL
     Dosage: D1-D2
     Route: 041
     Dates: start: 20150826, end: 20151105
  12. BEVACIZUMAB [Suspect]
     Active Substance: BEVACIZUMAB
     Dosage: SINGLE DOSE
     Route: 042
     Dates: start: 20150616, end: 20150616
  13. 5-FU [Concomitant]
     Active Substance: FLUOROURACIL
     Route: 040
     Dates: start: 20150731, end: 20150801
  14. ASPIRIN. [Concomitant]
     Active Substance: ASPIRIN
     Indication: HYPERTENSION
     Route: 048
     Dates: end: 201612
  15. FOLINIC ACID [Concomitant]
     Active Substance: LEUCOVORIN
     Route: 042
     Dates: start: 20150826, end: 20151104
  16. OXALIPLATIN. [Concomitant]
     Active Substance: OXALIPLATIN
     Route: 042
     Dates: start: 20150826, end: 20151103
  17. 5-FU [Concomitant]
     Active Substance: FLUOROURACIL
     Indication: COLORECTAL CANCER
     Route: 040
     Dates: start: 20150518, end: 20150715
  18. 5-FU [Concomitant]
     Active Substance: FLUOROURACIL
     Route: 040
     Dates: start: 20150808, end: 20151104
  19. BEVACIZUMAB [Suspect]
     Active Substance: BEVACIZUMAB
     Dosage: SINGLE DOSE
     Route: 042
     Dates: start: 20151103, end: 20151103
  20. EPROSARTAN [Concomitant]
     Active Substance: EPROSARTAN
     Indication: HYPERTENSION
     Route: 048
     Dates: end: 20160121
  21. PANTOZOL [Concomitant]
     Active Substance: PANTOPRAZOLE SODIUM
     Route: 048
     Dates: end: 201612
  22. FORXIGA [Concomitant]
     Active Substance: DAPAGLIFLOZIN
     Indication: DIABETES MELLITUS
     Route: 048
     Dates: end: 201612
  23. SIMVASTATIN. [Concomitant]
     Active Substance: SIMVASTATIN
     Route: 048

REACTIONS (7)
  - Impaired healing [Recovered/Resolved]
  - Anaemia [Unknown]
  - Leukopenia [Recovered/Resolved]
  - Syncope [Recovering/Resolving]
  - Erythema [Recovered/Resolved]
  - Dehydration [Recovered/Resolved]
  - Chemical peritonitis [Recovering/Resolving]

NARRATIVE: CASE EVENT DATE: 20150627
